FAERS Safety Report 5147098-3 (Version None)
Quarter: 2006Q4

REPORT INFORMATION
  Report Type: 
  Country: None (occurrence: None)
  Receive Date: 20061103
  Receipt Date: 20061025
  Transmission Date: 20070319
  Serious: Yes (Other)
  Sender: FDA-Public Use
  Company Number: JP-2006-033064

PATIENT
  Age: 65 Year
  Sex: Female

DRUGS (1)
  1. SOTALOL HYDROCHLORIDE [Suspect]
     Indication: ATRIAL FIBRILLATION
     Dosage: 80 MG, 1X/DAY, ORAL
     Route: 048

REACTIONS (5)
  - ARRHYTHMIA [None]
  - BRADYCARDIA [None]
  - CARDIAC ARREST [None]
  - CONDITION AGGRAVATED [None]
  - ELECTROMECHANICAL DISSOCIATION [None]
